FAERS Safety Report 9767843 (Version 2)
Quarter: 2013Q4

REPORT INFORMATION
  Report Type: Report from Study
  Country: NL (occurrence: NL)
  Receive Date: 20131217
  Receipt Date: 20131217
  Transmission Date: 20140711
  Serious: Yes (Death, Hospitalization)
  Sender: FDA-Public Use
  Company Number: NL-ABBVIE-12P-114-0971919-00

PATIENT
  Age: 40 Year
  Sex: Female
  Weight: 59 kg

DRUGS (4)
  1. LUCRIN DEPOT 11.25 MG [Suspect]
     Indication: BREAST CANCER
     Route: 058
     Dates: start: 20120307
  2. ASCAL [Concomitant]
     Indication: THROMBOSIS
     Route: 048
     Dates: start: 1991
  3. TAMOXIFEN [Concomitant]
     Indication: BREAST CANCER
     Route: 048
     Dates: start: 20120529
  4. CALCIUM CARBONATE [Concomitant]
     Indication: MINERAL SUPPLEMENTATION
     Route: 048
     Dates: start: 201207

REACTIONS (4)
  - Death [Fatal]
  - Adverse event [Unknown]
  - Insomnia [Not Recovered/Not Resolved]
  - Palpitations [Not Recovered/Not Resolved]
